FAERS Safety Report 9164560 (Version 2)
Quarter: 2013Q2

REPORT INFORMATION
  Report Type: Spontaneous
  Country: IT (occurrence: None)
  Receive Date: 20130221
  Receipt Date: 20130410
  Transmission Date: 20140414
  Serious: Yes (Life-Threatening)
  Sender: FDA-Public Use
  Company Number: FK201300495

PATIENT
  Age: 12 Year
  Sex: Female
  Weight: 45 kg

DRUGS (2)
  1. PROPOFOL [Suspect]
     Indication: GENERAL ANAESTHESIA
     Route: 042
     Dates: start: 20121219, end: 20121219
  2. REMIFENTANIL [Suspect]
     Indication: GENERAL ANAESTHESIA
     Dosage: 0.3 MICROGRAMS/KG/KG, INTRAVENOUS (NOT OTHERWISE SPECIFIED)

REACTIONS (6)
  - Anaphylactic shock [None]
  - Bronchospasm [None]
  - Hypotension [None]
  - Oedema [None]
  - Metabolic acidosis [None]
  - Hyperlactacidaemia [None]
